FAERS Safety Report 9417461 (Version 1)
Quarter: 2013Q3

REPORT INFORMATION
  Report Type: Report from Study
  Country: GB (occurrence: GB)
  Receive Date: 20130724
  Receipt Date: 20130724
  Transmission Date: 20140515
  Serious: Yes (Hospitalization)
  Sender: FDA-Public Use
  Company Number: GB-TEVA-415764USA

PATIENT
  Age: 83 Year
  Sex: Female
  Weight: 50.9 kg

DRUGS (8)
  1. BENDAMUSTINE [Suspect]
     Indication: CHRONIC LYMPHOCYTIC LEUKAEMIA
     Dosage: UNKNOWN/D
     Route: 042
     Dates: start: 20130514, end: 20130515
  2. OFATUMUMAB [Suspect]
     Indication: CHRONIC LYMPHOCYTIC LEUKAEMIA
     Dosage: UNKNOWN/D
     Route: 042
     Dates: start: 20130514, end: 20130521
  3. PREDNISOLONE [Concomitant]
  4. ACICLOVIR [Concomitant]
     Indication: CHRONIC LYMPHOCYTIC LEUKAEMIA
     Route: 048
     Dates: start: 20130514
  5. G-CSF [Concomitant]
  6. TAZOCIN [Concomitant]
     Dosage: 13.5 MILLIGRAM DAILY;
     Route: 042
     Dates: start: 20130605, end: 20130607
  7. DALTEPARIN [Concomitant]
     Indication: ANTICOAGULANT THERAPY
     Dosage: 5000 UNKNOWN DAILY;
     Route: 058
     Dates: start: 20130605
  8. GENTAMICIN [Concomitant]
     Dosage: 250 MILLIGRAM DAILY;
     Route: 042
     Dates: start: 20130605, end: 20130607

REACTIONS (5)
  - Body temperature decreased [Unknown]
  - Febrile neutropenia [Recovered/Resolved]
  - Urinary tract infection [Unknown]
  - Gingival pain [Unknown]
  - Chills [Unknown]
